FAERS Safety Report 7914655-8 (Version None)
Quarter: 2011Q4

REPORT INFORMATION
  Report Type: 
  Country: None (occurrence: None)
  Receive Date: 20111115
  Receipt Date: 20111107
  Transmission Date: 20120403
  Serious: Yes (Death, Hospitalization)
  Sender: FDA-Public Use
  Company Number: PHHO2011JP14915

PATIENT
  Sex: Male
  Weight: 66 kg

DRUGS (18)
  1. TRICHLORMETHIAZIDE [Concomitant]
     Indication: CARDIAC FAILURE CHRONIC
     Dosage: 1 MG, DAILY
     Route: 048
     Dates: start: 20050812
  2. CARVEDILOL [Concomitant]
     Indication: CARDIAC FAILURE CHRONIC
     Dosage: 4 MG, DAILY
     Route: 048
     Dates: start: 20051004
  3. RESCULA [Concomitant]
     Indication: NORMAL TENSION GLAUCOMA
     Dosage: UNK
     Dates: start: 20051004
  4. ALISKIREN [Suspect]
     Dosage: UNK
  5. ENALAPRIL MALEATE [Suspect]
     Indication: CARDIAC FAILURE
     Dosage: 10 MG, BID
     Route: 046
     Dates: start: 20110105
  6. ENALAPRIL MALEATE [Concomitant]
     Indication: CARDIAC FAILURE CHRONIC
     Dosage: 10 UNK, UNK
     Route: 048
     Dates: start: 20110105
  7. NOVOLIN R [Concomitant]
     Indication: DIABETES MELLITUS
     Dosage: 12 IU IN MORNING, 10 IU
     Route: 058
     Dates: start: 20050324
  8. SALOBEL [Concomitant]
     Indication: HYPERURICAEMIA
     Dosage: 100 MG, UNK
     Route: 048
     Dates: start: 20110413
  9. ENALAPRIL MALEATE [Suspect]
     Dosage: 20 MG, BID
     Route: 048
     Dates: start: 20110201
  10. ASPIRIN [Concomitant]
     Indication: MYOCARDIAL INFARCTION
     Dosage: 100 MG, UNK
     Route: 048
     Dates: start: 20050411
  11. WARFARIN SODIUM [Concomitant]
     Indication: THROMBOSIS PROPHYLAXIS
     Dosage: 3 MG, UNK
     Route: 048
     Dates: start: 20090811, end: 20111005
  12. ALISKIREN [Suspect]
     Indication: CARDIAC FAILURE
     Dosage: UNK
     Route: 048
     Dates: start: 20110217
  13. ALDACTONE [Concomitant]
     Indication: CARDIAC FAILURE CHRONIC
     Dosage: 25 MG, UNK
     Route: 048
     Dates: start: 20050414
  14. KAYEXALATE [Concomitant]
     Indication: RENAL FAILURE CHRONIC
     Dosage: 10 G, BID
     Route: 048
     Dates: start: 20101124, end: 20110829
  15. LASIX [Concomitant]
     Indication: CARDIAC FAILURE CHRONIC
     Dosage: 40 MG, UNK
     Route: 048
     Dates: start: 20050709
  16. WARFARIN SODIUM [Concomitant]
     Dosage: 2 MG
     Dates: start: 20111006
  17. MUCOSTA [Concomitant]
     Indication: GASTRITIS PROPHYLAXIS
     Dosage: 100 MG, UNK
     Route: 048
     Dates: start: 20050709
  18. KREMEZIN [Concomitant]
     Indication: RENAL FAILURE CHRONIC
     Dosage: 6 G, UNK
     Route: 048
     Dates: start: 20101109

REACTIONS (2)
  - SUDDEN CARDIAC DEATH [None]
  - CONDITION AGGRAVATED [None]
